FAERS Safety Report 7647128-0 (Version None)
Quarter: 2011Q3

REPORT INFORMATION
  Report Type: 
  Country: None (occurrence: None)
  Receive Date: 20110801
  Receipt Date: 20110721
  Transmission Date: 20111222
  Serious: Yes (Death)
  Sender: FDA-Public Use
  Company Number: GB-JNJFOC-20110710831

PATIENT
  Sex: Female

DRUGS (2)
  1. RIVAROXABAN [Suspect]
     Indication: KNEE OPERATION
     Route: 065
     Dates: start: 20110318, end: 20110330
  2. RIVAROXABAN [Suspect]
     Route: 065

REACTIONS (2)
  - SKIN EXFOLIATION [None]
  - PULMONARY EMBOLISM [None]
